FAERS Safety Report 16076957 (Version 1)
Quarter: 2019Q1

REPORT INFORMATION
  Report Type: Spontaneous
  Country: US (occurrence: US)
  Receive Date: 20190214
  Receipt Date: 20190214
  Transmission Date: 20190418
  Serious: Yes (Hospitalization)
  Sender: FDA-Public Use
  Company Number: None

PATIENT
  Age: 32 Year
  Sex: Male

DRUGS (1)
  1. TEMOZOLOMIDE 140MG CAP [Suspect]
     Active Substance: TEMOZOLOMIDE
     Dates: start: 201808

REACTIONS (4)
  - Nausea [None]
  - Confusional state [None]
  - Vomiting [None]
  - Neoplasm progression [None]

NARRATIVE: CASE EVENT DATE: 20190121
